FAERS Safety Report 9192927 (Version 1)
Quarter: 2013Q1

REPORT INFORMATION
  Report Type: Spontaneous
  Country: US (occurrence: US)
  Receive Date: 20130327
  Receipt Date: 20130327
  Transmission Date: 20140127
  Serious: Yes (Death, Other)
  Sender: FDA-Public Use
  Company Number: US-B.I. PHARMACEUTICALS,INC./RIDGEFIELD-2013-BI-08017GD

PATIENT
  Age: 72 Year
  Sex: Male

DRUGS (2)
  1. PRADAXA [Suspect]
     Indication: CEREBROVASCULAR ACCIDENT PROPHYLAXIS
  2. PRADAXA [Suspect]
     Indication: ATRIAL FIBRILLATION

REACTIONS (8)
  - Haemorrhage intracranial [Fatal]
  - Cerebellar haemorrhage [Unknown]
  - Intraventricular haemorrhage [Unknown]
  - Somnolence [Unknown]
  - Dysarthria [Unknown]
  - Nystagmus [Unknown]
  - Headache [Unknown]
  - Neurological decompensation [Unknown]
